FAERS Safety Report 6493005-0 (Version None)
Quarter: 2009Q4

REPORT INFORMATION
  Report Type: 
  Country: None (occurrence: None)
  Receive Date: 20091214
  Receipt Date: 20091130
  Transmission Date: 20100525
  Serious: Yes (Hospitalization)
  Sender: FDA-Public Use
  Company Number: SI-JNJFOC-20091203308

PATIENT
  Age: 4 Year
  Sex: Female

DRUGS (1)
  1. TRAMADOL HYDROCHLORIDE [Suspect]
     Indication: ACCIDENTAL EXPOSURE
     Route: 048

REACTIONS (10)
  - ACCIDENTAL DRUG INTAKE BY CHILD [None]
  - CYANOSIS [None]
  - GRAND MAL CONVULSION [None]
  - HALLUCINATION [None]
  - OPISTHOTONUS [None]
  - RESPIRATORY DEPRESSION [None]
  - RESPIRATORY DISORDER [None]
  - SOMNOLENCE [None]
  - TACHYCARDIA [None]
  - TREMOR [None]
